FAERS Safety Report 6301862-3 (Version None)
Quarter: 2009Q3

REPORT INFORMATION
  Report Type: 
  Country: None (occurrence: None)
  Receive Date: 20090807
  Receipt Date: 20090730
  Transmission Date: 20100115
  Serious: Yes (Hospitalization)
  Sender: FDA-Public Use
  Company Number: US-CELGENEUS-163-21880-09070176

PATIENT
  Sex: Female

DRUGS (2)
  1. REVLIMID [Suspect]
     Indication: MYELODYSPLASTIC SYNDROME
     Route: 048
     Dates: start: 20090506, end: 20090702
  2. ASPIRIN TAB [Concomitant]
     Route: 065
     Dates: start: 20080101

REACTIONS (3)
  - AGGRESSION [None]
  - CEREBRAL HAEMORRHAGE [None]
  - DISORIENTATION [None]
